FAERS Safety Report 7509862-2 (Version None)
Quarter: 2011Q3

REPORT INFORMATION
  Report Type: 
  Country: None (occurrence: None)
  Receive Date: 20110527
  Receipt Date: 20110519
  Transmission Date: 20111222
  Serious: Yes (Hospitalization)
  Sender: FDA-Public Use
  Company Number: B0720276A

PATIENT
  Sex: Female

DRUGS (11)
  1. VENTOLIN [Suspect]
     Route: 055
  2. TERCIAN [Suspect]
     Dosage: 1000MG SINGLE DOSE
     Route: 048
     Dates: start: 20110405, end: 20110405
  3. TRANSIPEG [Suspect]
     Route: 048
  4. SPIRIVA [Suspect]
     Indication: CHRONIC OBSTRUCTIVE PULMONARY DISEASE
     Route: 055
  5. LAMALINE [Suspect]
     Route: 065
  6. LEXOMIL [Suspect]
     Route: 048
  7. LYRICA [Suspect]
     Route: 048
  8. SPASFON [Suspect]
     Route: 065
  9. EFFEXOR [Suspect]
     Route: 048
  10. VIRAFERON [Suspect]
     Route: 058
  11. BRONCHODUAL [Suspect]
     Indication: CHRONIC OBSTRUCTIVE PULMONARY DISEASE
     Route: 055

REACTIONS (1)
  - SUICIDE ATTEMPT [None]
